FAERS Safety Report 14114935 (Version 1)
Quarter: 2017Q4

REPORT INFORMATION
  Report Type: Spontaneous
  Country: FR (occurrence: FR)
  Receive Date: 20171023
  Receipt Date: 20171023
  Transmission Date: 20180321
  Serious: Yes (Hospitalization)
  Sender: FDA-Public Use
  Company Number: FR-EMD SERONO-8195150

PATIENT
  Age: 34 Year
  Sex: Female

DRUGS (4)
  1. CETROTIDE [Suspect]
     Active Substance: CETRORELIX ACETATE
     Indication: OOCYTE HARVEST
     Dosage: POWDER AND SOLVENT FOR SOLUTION FOR INJECTION
     Route: 058
     Dates: start: 20170216, end: 20170224
  2. DECAPEPTYL                         /00486501/ [Suspect]
     Active Substance: GONADORELIN
     Indication: OOCYTE HARVEST
     Route: 058
     Dates: start: 20170224, end: 20170224
  3. GONAL-F [Suspect]
     Active Substance: FOLLITROPIN
     Indication: OOCYTE HARVEST
     Route: 058
     Dates: start: 20170216, end: 20170223
  4. GONADOTROPIN CHORIONIC [Suspect]
     Active Substance: GONADOTROPHIN, CHORIONIC
     Indication: OOCYTE HARVEST
     Route: 030
     Dates: start: 20170224, end: 20170224

REACTIONS (1)
  - Peritoneal haemorrhage [Recovered/Resolved]

NARRATIVE: CASE EVENT DATE: 20170226
